FAERS Safety Report 9915309 (Version 1)
Quarter: 2014Q1

REPORT INFORMATION
  Report Type: Report from Study
  Country: US (occurrence: US)
  Receive Date: 20140221
  Receipt Date: 20140221
  Transmission Date: 20141002
  Serious: Yes (Other)
  Sender: FDA-Public Use
  Company Number: US-ROCHE-1315195

PATIENT
  Age: 63 Year
  Sex: Female

DRUGS (18)
  1. LUCENTIS [Suspect]
     Indication: CYSTOID MACULAR OEDEMA
     Route: 050
     Dates: start: 20110609
  2. LUCENTIS [Suspect]
     Indication: MACULAR FIBROSIS
  3. AVASTIN [Suspect]
     Indication: PRODUCT USED FOR UNKNOWN INDICATION
     Route: 065
     Dates: start: 20070531, end: 20080226
  4. AVASTIN [Suspect]
     Route: 065
     Dates: start: 20080226
  5. AVASTIN [Suspect]
     Route: 065
     Dates: start: 20051213, end: 20080417
  6. FOSAMAX [Concomitant]
  7. PREMARIN [Concomitant]
  8. OXYGEN [Concomitant]
     Route: 065
  9. SPIRIVA [Concomitant]
  10. SYMBICORT [Concomitant]
  11. DICYCLOMINE [Concomitant]
  12. SULFAMETHOXAZOLE [Concomitant]
  13. TISSUE SALTS [Concomitant]
  14. MACUGEN [Concomitant]
     Route: 065
     Dates: start: 200508, end: 20080417
  15. TURMERIC [Concomitant]
  16. OMEGA 3 [Concomitant]
  17. COLLAGEN [Concomitant]
  18. CIPROFLOXACIN [Concomitant]
     Dosage: FOR 3 DAYS
     Route: 047

REACTIONS (12)
  - Cystoid macular oedema [Unknown]
  - Macular oedema [Recovered/Resolved]
  - Blepharitis [Unknown]
  - Visual acuity reduced [Unknown]
  - Vitreous floaters [Unknown]
  - Visual impairment [Unknown]
  - Macular scar [Unknown]
  - Macular fibrosis [Unknown]
  - Vision blurred [Recovering/Resolving]
  - Visual impairment [Unknown]
  - Photopsia [Unknown]
  - Metamorphopsia [Unknown]
